FAERS Safety Report 6086023-8 (Version None)
Quarter: 2009Q1

REPORT INFORMATION
  Report Type: 
  Country: None (occurrence: None)
  Receive Date: 20090217
  Receipt Date: 20090217
  Transmission Date: 20090719
  Serious: Yes (Other)
  Sender: FDA-Public Use
  Company Number: None

PATIENT
  Sex: Female
  Weight: 32.092 kg

DRUGS (1)
  1. TEEN ADVANTAGE COMPLETE MULTIVIT UNKNOWN, 80 TABLET SIZE BAYER ONE A D [Suspect]
     Dosage: 1 TABLET EVERY 2-3 DAYS PO
     Route: 048
     Dates: start: 20090115, end: 20090216

REACTIONS (1)
  - VOMITING [None]
